FAERS Safety Report 17532449 (Version 6)
Quarter: 2020Q2

REPORT INFORMATION
  Report Type: Report from Study
  Country: GT (occurrence: GT)
  Receive Date: 20200312
  Receipt Date: 20200603
  Transmission Date: 20200713
  Serious: Yes (Hospitalization, Other)
  Sender: FDA-Public Use
  Company Number: GT-JNJFOC-20200301718

PATIENT
  Sex: Male
  Weight: 137 kg

DRUGS (13)
  1. EXFORGE [Concomitant]
     Active Substance: AMLODIPINE BESYLATE\VALSARTAN
  2. FUCIDINE [Concomitant]
  3. IMUREL [Concomitant]
     Active Substance: AZATHIOPRINE SODIUM
     Indication: PRODUCT USED FOR UNKNOWN INDICATION
     Route: 065
  4. PENTASA [Concomitant]
     Active Substance: MESALAMINE
     Indication: PRODUCT USED FOR UNKNOWN INDICATION
     Route: 065
  5. GASTROFLUX                         /00706001/ [Concomitant]
  6. MAALOX ANTACID [Concomitant]
     Active Substance: ALUMINUM HYDROXIDE\DIMETHICONE\MAGNESIUM HYDROXIDE
  7. STELARA [Suspect]
     Active Substance: USTEKINUMAB
     Indication: CROHN^S DISEASE
     Route: 058
     Dates: start: 20190110
  8. SULFASALAZINE. [Concomitant]
     Active Substance: SULFASALAZINE
  9. PRIDAC [Concomitant]
  10. COVERAM [Concomitant]
     Active Substance: AMLODIPINE\PERINDOPRIL
  11. DOSTINEX [Concomitant]
     Active Substance: CABERGOLINE
     Indication: PITUITARY TUMOUR
  12. PREGABALIN. [Concomitant]
     Active Substance: PREGABALIN
  13. CONCOR [Concomitant]
     Active Substance: BISOPROLOL FUMARATE

REACTIONS (11)
  - Rheumatoid arthritis [Unknown]
  - Headache [Unknown]
  - Burning sensation [Unknown]
  - Drug ineffective [Unknown]
  - Skin infection [Unknown]
  - Depression [Unknown]
  - Crohn^s disease [Not Recovered/Not Resolved]
  - Pituitary tumour [Unknown]
  - Constipation [Unknown]
  - Pain [Unknown]
  - Acne [Unknown]

NARRATIVE: CASE EVENT DATE: 2019
